FAERS Safety Report 25699139 (Version 3)
Quarter: 2025Q4

REPORT INFORMATION
  Report Type: Report from Study
  Country: US (occurrence: US)
  Receive Date: 20250819
  Receipt Date: 20251113
  Transmission Date: 20260118
  Serious: Yes (Other)
  Sender: ABBVIE
  Company Number: US-ABBVIE-6418874

PATIENT
  Age: 73 Year
  Sex: Male

DRUGS (1)
  1. SKYRIZI [Suspect]
     Active Substance: RISANKIZUMAB-RZAA
     Indication: Crohn^s disease
     Route: 058

REACTIONS (12)
  - Cervical vertebral fracture [Not Recovered/Not Resolved]
  - Ligamentitis [Unknown]
  - Intestinal obstruction [Unknown]
  - Loss of consciousness [Unknown]
  - Haematoma [Unknown]
  - Contusion [Unknown]
  - Haemorrhage [Unknown]
  - Presyncope [Unknown]
  - Fall [Unknown]
  - Stoma site inflammation [Unknown]
  - Blood pressure decreased [Unknown]
  - Dehydration [Unknown]

NARRATIVE: CASE EVENT DATE: 20250801
